FAERS Safety Report 10302387 (Version 3)
Quarter: 2015Q3

REPORT INFORMATION
  Report Type: Spontaneous
  Country: US (occurrence: US)
  Receive Date: 20140714
  Receipt Date: 20150814
  Transmission Date: 20151125
  Serious: No
  Sender: FDA-Public Use
  Company Number: US-GILEAD-2013-0082687

PATIENT
  Age: 74 Year
  Sex: Male

DRUGS (1)
  1. LETAIRIS [Suspect]
     Active Substance: AMBRISENTAN
     Indication: PULMONARY ARTERIAL HYPERTENSION
     Dates: start: 20130816

REACTIONS (4)
  - Oxygen saturation decreased [Recovering/Resolving]
  - Blood pressure decreased [Recovering/Resolving]
  - Condition aggravated [Recovering/Resolving]
  - Fluid retention [Recovering/Resolving]
